FAERS Safety Report 19980399 (Version 1)
Quarter: 2021Q4

REPORT INFORMATION
  Report Type: Spontaneous
  Country: JP (occurrence: JP)
  Receive Date: 20211021
  Receipt Date: 20211021
  Transmission Date: 20220304
  Serious: Yes (Other)
  Sender: FDA-Public Use
  Company Number: JP-UCBJ-CD202109366UCBPHAPROD

PATIENT
  Age: 9 Decade
  Sex: Male

DRUGS (2)
  1. LEVETIRACETAM [Suspect]
     Active Substance: LEVETIRACETAM
     Indication: Epilepsy
     Dosage: UNK UNK, 2X/DAY (BID)
     Route: 048
  2. LEVETIRACETAM [Suspect]
     Active Substance: LEVETIRACETAM
     Dosage: UNK UNK, ONCE DAILY (QD)
     Route: 048

REACTIONS (5)
  - Renal impairment [Unknown]
  - Drug level increased [Unknown]
  - Tachycardia [Not Recovered/Not Resolved]
  - Infection [Unknown]
  - Off label use [Unknown]
